FAERS Safety Report 9494188 (Version 1)
Quarter: 2013Q3

REPORT INFORMATION
  Report Type: Spontaneous
  Country: BR (occurrence: BR)
  Receive Date: 20130903
  Receipt Date: 20130903
  Transmission Date: 20140515
  Serious: Yes (Other)
  Sender: FDA-Public Use
  Company Number: BR-ACCORD-019181

PATIENT
  Age: 47 Year
  Sex: Female
  Weight: 49 kg

DRUGS (5)
  1. PACLITAXEL [Suspect]
     Indication: CHEMOTHERAPY
     Route: 042
     Dates: start: 20130730, end: 20130730
  2. RANITIDINE [Concomitant]
     Route: 042
     Dates: start: 20130730, end: 20130730
  3. DEXAMETHASONE [Concomitant]
     Route: 042
     Dates: start: 20130730, end: 20130730
  4. ONDANSETRON [Concomitant]
     Route: 042
     Dates: start: 20130730, end: 20130730
  5. DIPHENHYDRAMINE [Concomitant]
     Route: 042
     Dates: start: 20130730, end: 20130730

REACTIONS (2)
  - Tremor [Recovered/Resolved]
  - Hyperhidrosis [Recovered/Resolved]
